FAERS Safety Report 7118537-3 (Version None)
Quarter: 2010Q4

REPORT INFORMATION
  Report Type: 
  Country: None (occurrence: None)
  Receive Date: 20101123
  Receipt Date: 20101115
  Transmission Date: 20110411
  Serious: Yes (Other)
  Sender: FDA-Public Use
  Company Number: US-SANOFI-AVENTIS-2010SA043840

PATIENT
  Age: 61 Year
  Sex: Male
  Weight: 108 kg

DRUGS (6)
  1. MULTAQ [Suspect]
     Indication: ATRIAL FIBRILLATION
     Route: 048
     Dates: start: 20100510
  2. COUMADIN [Suspect]
     Dosage: 5MG TIMES 5 DAYS AND 2.5MG TIMES 2 DAYS
     Route: 048
  3. COUMADIN [Suspect]
     Dosage: 5MG TIMES 3DAYS AND 2.5MG TIMES 3 DAYS
     Route: 048
  4. NEBIVOLOL [Concomitant]
     Route: 048
  5. AZOR [Concomitant]
     Dosage: 5/40MG
     Route: 048
  6. ATORVASTATIN [Concomitant]
     Route: 048

REACTIONS (1)
  - INTERNATIONAL NORMALISED RATIO INCREASED [None]
